FAERS Safety Report 12696463 (Version 1)
Quarter: 2016Q3

REPORT INFORMATION
  Report Type: Spontaneous
  Country: US (occurrence: US)
  Receive Date: 20160830
  Receipt Date: 20160830
  Transmission Date: 20161109
  Serious: No
  Sender: FDA-Public Use
  Company Number: US-LEO PHARMA-243710

PATIENT
  Age: 38 Year
  Sex: Female

DRUGS (1)
  1. DAIVOBET [Suspect]
     Active Substance: BETAMETHASONE DIPROPIONATE\CALCIPOTRIENE
     Indication: PSORIASIS
     Route: 061
     Dates: start: 20160821

REACTIONS (2)
  - Medication residue present [Recovered/Resolved]
  - Product difficult to remove [Recovered/Resolved]

NARRATIVE: CASE EVENT DATE: 20160821
